FAERS Safety Report 7343994-7 (Version None)
Quarter: 2011Q1

REPORT INFORMATION
  Report Type: 
  Country: None (occurrence: None)
  Receive Date: 20110310
  Receipt Date: 20100408
  Transmission Date: 20110831
  Serious: No
  Sender: FDA-Public Use
  Company Number: A0854054A

PATIENT
  Age: 69 Year
  Sex: Female

DRUGS (1)
  1. MEMBERS MARK NICOTINE GUM 2MG, ORIGINAL [Suspect]
     Dates: start: 20100406

REACTIONS (2)
  - BLISTER [None]
  - STOMATITIS [None]
